FAERS Safety Report 12266814 (Version 1)
Quarter: 2016Q2

REPORT INFORMATION
  Report Type: Spontaneous
  Country: US (occurrence: US)
  Receive Date: 20160414
  Receipt Date: 20160414
  Transmission Date: 20160815
  Serious: No
  Sender: FDA-Public Use
  Company Number: US-009507513-1604USA003030

PATIENT
  Age: 39 Year
  Sex: Female

DRUGS (2)
  1. GANIRELIX ACETATE INJECTION [Concomitant]
     Active Substance: GANIRELIX ACETATE
  2. FOLLISTIM [Suspect]
     Active Substance: FOLLITROPIN

REACTIONS (1)
  - Adverse event [Unknown]
